FAERS Safety Report 15614390 (Version 3)
Quarter: 2018Q4

REPORT INFORMATION
  Report Type: Report from Study
  Country: US (occurrence: US)
  Receive Date: 20181113
  Receipt Date: 20181219
  Transmission Date: 20190205
  Serious: Yes (Life-Threatening, Hospitalization, Other)
  Sender: FDA-Public Use
  Company Number: PHHO2018US010369

PATIENT
  Age: 15 Year
  Sex: Male
  Weight: 35.1 kg

DRUGS (7)
  1. VINCRISTINE [Concomitant]
     Active Substance: VINCRISTINE
     Indication: PRODUCT USED FOR UNKNOWN INDICATION
     Dosage: 2 MG, ONCE/SINGLE
     Route: 065
     Dates: start: 20180808, end: 20180808
  2. KYMRIAH [Suspect]
     Active Substance: TISAGENLECLEUCEL
     Indication: ACUTE LYMPHOCYTIC LEUKAEMIA RECURRENT
     Dosage: 14.96 X 10^6 IN 44 ML
     Route: 042
     Dates: start: 20180727, end: 20180727
  3. AMLODIPINE [Concomitant]
     Active Substance: AMLODIPINE BESYLATE
     Indication: PRODUCT USED FOR UNKNOWN INDICATION
     Dosage: 5 MG, UNK
     Dates: start: 20181011, end: 20181024
  4. BLINATUMOMAB [Concomitant]
     Active Substance: BLINATUMOMAB
     Indication: PRODUCT USED FOR UNKNOWN INDICATION
     Route: 065
     Dates: start: 201809
  5. CLONIDINE. [Concomitant]
     Active Substance: CLONIDINE
     Indication: PRODUCT USED FOR UNKNOWN INDICATION
     Route: 065
  6. ALTEPLASE. [Concomitant]
     Active Substance: ALTEPLASE
     Indication: PRODUCT USED FOR UNKNOWN INDICATION
     Dosage: 2 MG, ONCE/SINGLE
     Route: 065
     Dates: start: 20181023
  7. CLOTRIMAZOLE. [Concomitant]
     Active Substance: CLOTRIMAZOLE
     Indication: PRODUCT USED FOR UNKNOWN INDICATION
     Dosage: 10 MG, UNK
     Route: 065
     Dates: start: 20181011, end: 20181024

REACTIONS (34)
  - Hepatosplenomegaly [Unknown]
  - Lymphadenopathy [Unknown]
  - Pyrexia [Recovered/Resolved]
  - Lung consolidation [Unknown]
  - Cerebral ventricle dilatation [Unknown]
  - Dyspnoea [Unknown]
  - Encephalopathy [Recovered/Resolved]
  - Brain oedema [Unknown]
  - Febrile neutropenia [Recovered/Resolved with Sequelae]
  - Therapy non-responder [Unknown]
  - Hyperphosphataemia [Unknown]
  - Hyperglycaemia [Unknown]
  - Cushingoid [Unknown]
  - Seizure [Recovered/Resolved]
  - Abdominal distension [Unknown]
  - Pyrexia [Recovering/Resolving]
  - Epistaxis [Unknown]
  - Pancytopenia [Unknown]
  - Acute lymphocytic leukaemia recurrent [Unknown]
  - Aspergillus test positive [Unknown]
  - Hyperleukocytosis [Unknown]
  - Hypokalaemia [Unknown]
  - Tumour lysis syndrome [Recovering/Resolving]
  - Central nervous system lesion [Unknown]
  - Lower respiratory tract infection fungal [Unknown]
  - Cerebral atrophy [Unknown]
  - Kidney enlargement [Unknown]
  - C-reactive protein increased [Unknown]
  - Pneumonia fungal [Recovering/Resolving]
  - Electroencephalogram abnormal [Unknown]
  - Mitral valve disease [Unknown]
  - Malignant neoplasm progression [Unknown]
  - Hypertension [Unknown]
  - Pleural effusion [Unknown]

NARRATIVE: CASE EVENT DATE: 20180817
